FAERS Safety Report 9552410 (Version 1)
Quarter: 2013Q3

REPORT INFORMATION
  Report Type: Spontaneous
  Country: US (occurrence: None)
  Receive Date: 20130729
  Receipt Date: 20130729
  Transmission Date: 20140515
  Serious: Yes (Other)
  Sender: FDA-Public Use
  Company Number: 1209USA002718

PATIENT
  Sex: Female

DRUGS (2)
  1. REBETOL (RIBAVIRIN) CAPSULE [Suspect]
  2. PEGINTRON (PEGINTERFERON ALFA-2B) POWDER FOR INJECTION [Suspect]

REACTIONS (1)
  - Exposure via father [None]
